FAERS Safety Report 7653292-X (Version None)
Quarter: 2011Q3

REPORT INFORMATION
  Report Type: 
  Country: None (occurrence: None)
  Receive Date: 20110803
  Receipt Date: 20110729
  Transmission Date: 20111222
  Serious: Yes (Life-Threatening, Hospitalization)
  Sender: FDA-Public Use
  Company Number: BR-ELI_LILLY_AND_COMPANY-BR201106006279

PATIENT
  Sex: Male
  Weight: 72.5 kg

DRUGS (9)
  1. ACETAMINOPHEN AND CODEINE PHOSPHATE [Concomitant]
     Indication: PAIN
     Dosage: 120 MG, QD
     Dates: start: 20110428
  2. DIPIRONA [Concomitant]
     Indication: CHEST PAIN
     Dosage: UNK, QD
     Dates: start: 20110407
  3. VITAMIN B-12 [Concomitant]
     Indication: SUPPLEMENTATION THERAPY
     Dosage: 1000 UL, UNKNOWN
     Dates: start: 20110512, end: 20110512
  4. LOSARTAN POTASSIUM [Concomitant]
     Indication: HYPERTENSION
     Dosage: 120 MG, QD
  5. FOLIC ACID [Concomitant]
     Indication: SUPPLEMENTATION THERAPY
     Dosage: 350 MG, UNKNOWN
     Dates: start: 20110512
  6. PEMETREXED [Suspect]
     Indication: LUNG NEOPLASM MALIGNANT
     Dosage: 960 MG, OTHER
     Dates: start: 20110609, end: 20110627
  7. DEXAMETHASONE [Concomitant]
     Indication: SUPPLEMENTATION THERAPY
     Dosage: 8 MG, UNKNOWN
     Dates: start: 20110608, end: 20110610
  8. CARBOPLATIN [Suspect]
     Indication: LUNG NEOPLASM MALIGNANT
     Dosage: 634 MG, OTHER
     Dates: start: 20110609, end: 20110627
  9. TRAMADOL HCL [Concomitant]
     Indication: CHEST PAIN
     Dosage: 200 MG, QD
     Dates: start: 20110407

REACTIONS (2)
  - DYSPNOEA [None]
  - RESPIRATORY TRACT INFECTION [None]
